FAERS Safety Report 4399626-3 (Version None)
Quarter: 2004Q3

REPORT INFORMATION
  Report Type: 
  Country: None (occurrence: None)
  Receive Date: 20040716
  Receipt Date: 20040709
  Transmission Date: 20050211
  Serious: Yes (Other)
  Sender: FDA-Public Use
  Company Number: PHBS2004FR09338

PATIENT
  Age: 17 Year
  Sex: Female

DRUGS (6)
  1. CYCLOSPORINE [Suspect]
     Indication: RENAL TRANSPLANT
     Route: 065
  2. ATGAM [Suspect]
  3. TACROLIMUS [Suspect]
     Indication: RENAL TRANSPLANT
  4. PREDNISONE [Suspect]
  5. AZATHIOPRINE [Suspect]
     Indication: RENAL TRANSPLANT
  6. METHYLPREDNISOLONE [Concomitant]
     Route: 042

REACTIONS (9)
  - BLOOD CREATININE INCREASED [None]
  - EPSTEIN-BARR VIRUS INFECTION [None]
  - KIDNEY TRANSPLANT REJECTION [None]
  - LYMPHADENOPATHY [None]
  - LYMPHOPROLIFERATIVE DISORDER [None]
  - MASS [None]
  - NASAL CONGESTION [None]
  - NEPHRITIS [None]
  - TONSILLAR HYPERTROPHY [None]
